FAERS Safety Report 11800799 (Version 1)
Quarter: 2015Q4

REPORT INFORMATION
  Report Type: Spontaneous
  Country: US (occurrence: US)
  Receive Date: 20151204
  Receipt Date: 20151204
  Transmission Date: 20160305
  Serious: Yes (Hospitalization, Other)
  Sender: FDA-Public Use
  Company Number: US-PFIZER INC-2015407766

PATIENT
  Age: 75 Year
  Sex: Female
  Weight: 134 kg

DRUGS (16)
  1. CALCITRIOL. [Concomitant]
     Active Substance: CALCITRIOL
     Dosage: 0.25 UG, WEEKLY (STARTED SIX MONTHS AGO)
     Route: 048
  2. LANTUS [Concomitant]
     Active Substance: INSULIN GLARGINE
     Indication: DIABETES MELLITUS
     Dosage: 30 IU, 1X/DAY (30 UNITS INJECTION IN STOMACH)
  3. ALLOPURINOL. [Concomitant]
     Active Substance: ALLOPURINOL
     Indication: GOUT
     Dosage: 100 MG, 1X/DAY
     Route: 048
     Dates: end: 20151005
  4. LISINOPRIL. [Concomitant]
     Active Substance: LISINOPRIL
     Dosage: 10 G, 1X/DAY
     Route: 048
  5. METFORMIN [Concomitant]
     Active Substance: METFORMIN HYDROCHLORIDE
     Indication: DIABETES MELLITUS
     Dosage: 500 MG, 3X/DAY
     Route: 048
     Dates: end: 201411
  6. LOVASTATIN. [Concomitant]
     Active Substance: LOVASTATIN
     Indication: BLOOD CHOLESTEROL ABNORMAL
     Dosage: 40 MG, 1X/DAY
     Route: 048
  7. TOVIAZ [Suspect]
     Active Substance: FESOTERODINE FUMARATE
     Indication: INCONTINENCE
     Dosage: 8 MG, 1X/DAY
     Route: 048
     Dates: start: 2013
  8. LEVOTHYROXINE. [Concomitant]
     Active Substance: LEVOTHYROXINE
     Indication: THYROID DISORDER
     Dosage: 100 UG, 1X/DAY
     Route: 048
  9. HUMALOG [Concomitant]
     Active Substance: INSULIN LISPRO
     Indication: DIABETES MELLITUS
     Dosage: UNK (SLIDING SCALE) (PEN INJECTIONS IN STOMACH BEFORE EACH MEAL)
  10. METOPROLOL [Concomitant]
     Active Substance: METOPROLOL
     Indication: HYPERTENSION
     Dosage: 25 MG, 2X/DAY
  11. METOPROLOL [Concomitant]
     Active Substance: METOPROLOL
     Dosage: 100 MG, 2X/DAY
  12. GLIPIZIDE. [Concomitant]
     Active Substance: GLIPIZIDE
     Indication: DIABETES MELLITUS
     Dosage: 5 MG, 4X/DAY (THREE IN MORNING ONE AT NIGHT)
  13. WARFARIN [Concomitant]
     Active Substance: WARFARIN
     Indication: ANTICOAGULANT THERAPY
     Dosage: UNK (GOES FROM 10MG TO 7.5MG DEPENDING ON INR TEST)
     Route: 048
     Dates: start: 201508
  14. URSODIOL. [Concomitant]
     Active Substance: URSODIOL
     Indication: BILIARY CIRRHOSIS PRIMARY
     Dosage: 500 MG, 3X/DAY
     Route: 048
     Dates: start: 1994
  15. FUROSEMIDE. [Concomitant]
     Active Substance: FUROSEMIDE
     Dosage: 40 MG, 1X/DAY
     Route: 048
     Dates: start: 1990
  16. HYDROCHLOROTHIAZIDE. [Concomitant]
     Active Substance: HYDROCHLOROTHIAZIDE
     Dosage: UNK, 1X/DAY (25 TABLET)
     Route: 048

REACTIONS (15)
  - Diverticulitis [Not Recovered/Not Resolved]
  - Vertigo [Not Recovered/Not Resolved]
  - Kidney enlargement [Unknown]
  - Nephropathy [Not Recovered/Not Resolved]
  - Bladder discomfort [Unknown]
  - Dizziness [Not Recovered/Not Resolved]
  - Cystitis [Not Recovered/Not Resolved]
  - Blood urine present [Unknown]
  - Gout [Unknown]
  - Thrombosis [Recovered/Resolved]
  - Neuropathy peripheral [Not Recovered/Not Resolved]
  - Urinary bladder haemorrhage [Unknown]
  - Iron deficiency anaemia [Not Recovered/Not Resolved]
  - Urinary tract infection [Not Recovered/Not Resolved]
  - Gastrointestinal infection [Recovered/Resolved]

NARRATIVE: CASE EVENT DATE: 2014
